FAERS Safety Report 24828878 (Version 2)
Quarter: 2025Q1

REPORT INFORMATION
  Report Type: Report from Study
  Country: US (occurrence: US)
  Receive Date: 20250110
  Receipt Date: 20250205
  Transmission Date: 20250408
  Serious: No
  Sender: SUNOVION
  Company Number: US-SUMITOMO PHARMA SWITZERLAND GMBH-2025SPA000019

PATIENT

DRUGS (1)
  1. ORGOVYX [Suspect]
     Active Substance: RELUGOLIX
     Indication: Prostate cancer
     Dosage: 120 MG, QD
     Route: 048
     Dates: start: 20241127

REACTIONS (9)
  - Prostatomegaly [Unknown]
  - Sinusitis [Unknown]
  - Fall [Unknown]
  - Concussion [Unknown]
  - Hand fracture [Unknown]
  - Cystitis [Unknown]
  - Urinary tract infection [Unknown]
  - Diarrhoea [Unknown]
  - Incorrect dose administered [Unknown]
